FAERS Safety Report 18623791 (Version 1)
Quarter: 2020Q4

REPORT INFORMATION
  Report Type: Spontaneous
  Country: US (occurrence: US)
  Receive Date: 20201216
  Receipt Date: 20201216
  Transmission Date: 20210114
  Serious: Yes (Other)
  Sender: FDA-Public Use
  Company Number: US-CELGENEUS-USA-20201203290

PATIENT
  Sex: Male

DRUGS (1)
  1. REBLOZYL [Suspect]
     Active Substance: LUSPATERCEPT-AAMT
     Indication: ANAEMIA OF MALIGNANT DISEASE
     Dosage: 1.75 MG/KG
     Route: 058

REACTIONS (2)
  - Haemoglobin decreased [Unknown]
  - Pancreatic cyst [Unknown]

NARRATIVE: CASE EVENT DATE: 202011
